FAERS Safety Report 10977511 (Version 1)
Quarter: 2015Q1

REPORT INFORMATION
  Report Type: Spontaneous
  Country: IT (occurrence: None)
  Receive Date: 20150330
  Receipt Date: 20150330
  Transmission Date: 20150721
  Serious: No
  Sender: FDA-Public Use
  Company Number: IT-2015-1044

PATIENT
  Age: 69 Year
  Sex: Male
  Weight: 60 kg

DRUGS (2)
  1. CISPLATIN. [Suspect]
     Active Substance: CISPLATIN
     Indication: LUNG NEOPLASM MALIGNANT
     Dosage: 70 MG/M2, CYCLICAL (1/21), INTRAVENOUS?
     Route: 042
     Dates: start: 20150302
  2. NAVELBINE [Suspect]
     Active Substance: VINORELBINE TARTRATE
     Indication: LUNG NEOPLASM MALIGNANT
     Dosage: 25 MG/M2, CYCLICAL (1/21), INTRAVENOUS?
     Route: 042
     Dates: start: 20150302

REACTIONS (3)
  - Syncope [None]
  - Face injury [None]
  - Atonic seizures [None]

NARRATIVE: CASE EVENT DATE: 20150307
